FAERS Safety Report 5669463-8 (Version None)
Quarter: 2008Q1

REPORT INFORMATION
  Report Type: 
  Country: None (occurrence: None)
  Receive Date: 20080317
  Receipt Date: 20080307
  Transmission Date: 20080703
  Serious: Yes (Hospitalization)
  Sender: FDA-Public Use
  Company Number: B0512408A

PATIENT
  Age: 8 Year
  Sex: Female
  Weight: 39 kg

DRUGS (1)
  1. LAMICTAL [Suspect]
     Indication: EPILEPSY
     Dosage: 25MG PER DAY
     Route: 048
     Dates: start: 20080118, end: 20080201

REACTIONS (6)
  - APHTHOUS STOMATITIS [None]
  - EYELID OEDEMA [None]
  - LIP SWELLING [None]
  - MOUTH ULCERATION [None]
  - OEDEMA MOUTH [None]
  - RASH [None]
